FAERS Safety Report 8289506-5 (Version None)
Quarter: 2012Q2

REPORT INFORMATION
  Report Type: 
  Country: None (occurrence: None)
  Receive Date: 20120417
  Receipt Date: 20120411
  Transmission Date: 20120825
  Serious: Yes (Other)
  Sender: FDA-Public Use
  Company Number: US-PFIZER INC-2012091416

PATIENT
  Sex: Female

DRUGS (7)
  1. PERCOCET [Suspect]
     Dosage: UNK
  2. BACLOFEN [Suspect]
     Dosage: UNK
  3. SYNTHROID [Suspect]
     Dosage: UNK
  4. ADDERALL 5 [Suspect]
     Dosage: UNK
  5. PRISTIQ [Suspect]
     Dosage: UNK
  6. XANAX [Suspect]
     Dosage: UNK
  7. NEURONTIN [Suspect]
     Dosage: UNK

REACTIONS (1)
  - CATATONIA [None]
